FAERS Safety Report 17733866 (Version 1)
Quarter: 2020Q2

REPORT INFORMATION
  Report Type: Spontaneous
  Country: US (occurrence: US)
  Receive Date: 20200501
  Receipt Date: 20200501
  Transmission Date: 20200714
  Serious: Yes (Other)
  Sender: FDA-Public Use
  Company Number: None

PATIENT
  Age: 33 Year
  Sex: Female
  Weight: 60.3 kg

DRUGS (3)
  1. COLESTIPOL [Concomitant]
     Active Substance: COLESTIPOL
  2. PERCOCET [Concomitant]
     Active Substance: ACETAMINOPHEN\OXYCODONE HYDROCHLORIDE
  3. VICKS NYQUIL [Suspect]
     Active Substance: ACETAMINOPHEN\DEXTROMETHORPHAN HYDROBROMIDE\DOXYLAMINE SUCCINATE
     Indication: MALAISE

REACTIONS (4)
  - Asthenia [None]
  - Paranoia [None]
  - Confusional state [None]
  - Heart rate decreased [None]

NARRATIVE: CASE EVENT DATE: 20190807
